FAERS Safety Report 7641177-4 (Version None)
Quarter: 2011Q3

REPORT INFORMATION
  Report Type: 
  Country: None (occurrence: None)
  Receive Date: 20110728
  Receipt Date: 20110718
  Transmission Date: 20111222
  Serious: Yes (Hospitalization)
  Sender: FDA-Public Use
  Company Number: PHHY2011US65375

PATIENT
  Age: 32 Year
  Sex: Female
  Weight: 48 kg

DRUGS (1)
  1. CARBAMAZEPINE [Suspect]
     Dosage: 32 G, UNK

REACTIONS (15)
  - NERVOUS SYSTEM DISORDER [None]
  - OVERDOSE [None]
  - GRAND MAL CONVULSION [None]
  - DEPRESSED LEVEL OF CONSCIOUSNESS [None]
  - HYPOTENSION [None]
  - HYPOXIA [None]
  - HYPOTONIA [None]
  - DRUG LEVEL INCREASED [None]
  - SUICIDE ATTEMPT [None]
  - GASTROINTESTINAL SOUNDS ABNORMAL [None]
  - COMA SCALE ABNORMAL [None]
  - CORNEAL LIGHT REFLEX TEST ABNORMAL [None]
  - UNRESPONSIVE TO STIMULI [None]
  - HYPOREFLEXIA [None]
  - CARDIOVASCULAR DISORDER [None]
